FAERS Safety Report 13485761 (Version 4)
Quarter: 2017Q2

REPORT INFORMATION
  Report Type: Spontaneous
  Country: US (occurrence: US)
  Receive Date: 20170426
  Receipt Date: 20170627
  Transmission Date: 20170830
  Serious: Yes (Hospitalization, Other)
  Sender: FDA-Public Use
  Company Number: US-PFIZER INC-2017177260

PATIENT
  Age: 67 Year
  Sex: Female
  Weight: 65 kg

DRUGS (3)
  1. METHOTREXATE SODIUM. [Suspect]
     Active Substance: METHOTREXATE SODIUM
     Indication: RHEUMATOID ARTHRITIS
     Dosage: UNK
     Route: 048
     Dates: start: 2000, end: 20160425
  2. REMICADE [Interacting]
     Active Substance: INFLIXIMAB
     Indication: ARTHRITIS
     Dosage: UNK
     Dates: start: 2001, end: 20160425
  3. PROLIA [Interacting]
     Active Substance: DENOSUMAB
     Dosage: UNK

REACTIONS (6)
  - Bacteraemia [Unknown]
  - Sepsis [Unknown]
  - Osteomyelitis [Recovered/Resolved]
  - Drug interaction [Unknown]
  - Staphylococcal sepsis [Recovered/Resolved]
  - Malaise [Unknown]

NARRATIVE: CASE EVENT DATE: 20160425
